FAERS Safety Report 5400185-4 (Version None)
Quarter: 2007Q3

REPORT INFORMATION
  Report Type: 
  Country: None (occurrence: None)
  Receive Date: 20070727
  Receipt Date: 20070727
  Transmission Date: 20080115
  Serious: Yes (Hospitalization)
  Sender: FDA-Public Use
  Company Number: None

PATIENT
  Sex: Male
  Weight: 90 kg

DRUGS (15)
  1. CYTARABINE [Suspect]
     Dosage: 4120 MG
  2. ETOPOSIDE [Suspect]
     Dosage: 408 MG
  3. ACYCLOVIR [Concomitant]
  4. ATENOLOL [Concomitant]
  5. ATIVAN [Concomitant]
  6. BACTRIM [Concomitant]
  7. COLACE [Concomitant]
  8. DULCOLAX [Concomitant]
  9. FLUCONAZOLE [Concomitant]
  10. FLUCINONIDE [Concomitant]
  11. KEPPRA [Concomitant]
  12. LIPITOR [Concomitant]
  13. NORVASC [Concomitant]
  14. SENNA [Concomitant]
  15. TOBRADEX [Concomitant]

REACTIONS (2)
  - NEUTROPHIL COUNT DECREASED [None]
  - PLATELET COUNT DECREASED [None]
